FAERS Safety Report 8457986-8 (Version None)
Quarter: 2012Q2

REPORT INFORMATION
  Report Type: 
  Country: None (occurrence: None)
  Receive Date: 20120622
  Receipt Date: 20120618
  Transmission Date: 20120825
  Serious: Yes (Other)
  Sender: FDA-Public Use
  Company Number: US-TEVA-344122USA

PATIENT
  Age: 36 Year
  Sex: Female

DRUGS (10)
  1. LAMOTRIGINE [Suspect]
     Indication: BIPOLAR DISORDER
  2. ONDANSETRON [Suspect]
  3. LITHIUM [Suspect]
     Indication: BIPOLAR DISORDER
  4. LOXAPINE [Suspect]
     Indication: BIPOLAR DISORDER
  5. ACETAMINOPHEN [Concomitant]
  6. TRAZODONE HCL [Suspect]
     Indication: BIPOLAR DISORDER
  7. VENLAFAXINE HCL [Suspect]
     Indication: BIPOLAR DISORDER
  8. BUPROPION HCL [Suspect]
     Indication: BIPOLAR DISORDER
  9. CIPROFLOXACIN HYDROCHLORIDE [Concomitant]
     Indication: URINARY TRACT INFECTION
  10. SERTRALINE HYDROCHLORIDE [Suspect]
     Indication: BIPOLAR DISORDER

REACTIONS (5)
  - NEUROLEPTIC MALIGNANT SYNDROME [None]
  - DIARRHOEA [None]
  - HEADACHE [None]
  - VOMITING [None]
  - NAUSEA [None]
